FAERS Safety Report 15373186 (Version 1)
Quarter: 2018Q4

REPORT INFORMATION
  Report Type: Spontaneous
  Country: FR (occurrence: FR)
  Receive Date: 20180912
  Receipt Date: 20180912
  Transmission Date: 20190204
  Serious: Yes (Death)
  Sender: FDA-Public Use
  Company Number: FR-TEVA-2018-FR-953805

PATIENT
  Age: 47 Year
  Sex: Female

DRUGS (2)
  1. CLOMIPRAMINE (CHLORHYDRATE DE) [Suspect]
     Active Substance: CLOMIPRAMINE HYDROCHLORIDE
     Indication: COMPLETED SUICIDE
     Dosage: 110 CP OF  75 MG
     Route: 048
     Dates: start: 20180814, end: 20180814
  2. TIAPRIDE BASE [Suspect]
     Active Substance: TIAPRIDE HYDROCHLORIDE
     Indication: COMPLETED SUICIDE
     Dosage: 20 CP OF 100 MG
     Route: 048
     Dates: start: 20180814, end: 20180814

REACTIONS (2)
  - Intentional overdose [Fatal]
  - Death [Fatal]

NARRATIVE: CASE EVENT DATE: 20180814
